FAERS Safety Report 5703836-X (Version None)
Quarter: 2008Q2

REPORT INFORMATION
  Report Type: 
  Country: None (occurrence: None)
  Receive Date: 20080414
  Receipt Date: 20080403
  Transmission Date: 20081010
  Serious: Yes (Other)
  Sender: FDA-Public Use
  Company Number: HQWYE361011AUG06

PATIENT
  Age: 52 Year
  Sex: Female

DRUGS (5)
  1. PREMARIN [Suspect]
  2. VAGIFEM [Suspect]
  3. ESTRADIOL [Suspect]
  4. ESTRACE [Suspect]
  5. ESTRATEST [Suspect]

REACTIONS (1)
  - BREAST CANCER METASTATIC [None]
